FAERS Safety Report 22605879 (Version 2)
Quarter: 2024Q3

REPORT INFORMATION
  Report Type: Spontaneous
  Country: IN (occurrence: IN)
  Receive Date: 20230615
  Receipt Date: 20240824
  Transmission Date: 20241016
  Serious: Yes (Other)
  Sender: NOVARTIS
  Company Number: IN-002147023-NVSC2023IN136693

PATIENT
  Age: 4 Year
  Sex: Female

DRUGS (1)
  1. CARBAMAZEPINE [Suspect]
     Active Substance: CARBAMAZEPINE
     Indication: Epilepsy
     Dosage: 15 MG/KG, BID
     Route: 065

REACTIONS (6)
  - Haemophagocytic lymphohistiocytosis [Recovered/Resolved]
  - Pyrexia [Recovered/Resolved]
  - Vomiting [Recovered/Resolved]
  - Hypophagia [Recovered/Resolved]
  - Flushing [Recovered/Resolved]
  - Petechiae [Recovered/Resolved]
